FAERS Safety Report 15163234 (Version 4)
Quarter: 2019Q1

REPORT INFORMATION
  Report Type: Report from Study
  Country: ES (occurrence: ES)
  Receive Date: 20180718
  Receipt Date: 20190204
  Transmission Date: 20190417
  Serious: Yes (Other)
  Sender: FDA-Public Use
  Company Number: ES-UCBSA-2018009771

PATIENT
  Age: 74 Year
  Sex: Male

DRUGS (3)
  1. ROTIGOTINE [Suspect]
     Active Substance: ROTIGOTINE
     Dosage: CUT THE PATCH AND PUT 12 MG
     Dates: end: 20190116
  2. ROTIGOTINE [Suspect]
     Active Substance: ROTIGOTINE
     Indication: PARKINSON^S DISEASE
     Dosage: 8 MG, ONCE DAILY (QD)
     Dates: start: 201801, end: 201801
  3. ROTIGOTINE [Suspect]
     Active Substance: ROTIGOTINE
     Dosage: 16 MG, 2X/DAY (BID) 2PATCH/DAY

REACTIONS (11)
  - Dysphagia [Recovering/Resolving]
  - Application site erythema [Unknown]
  - Overdose [Unknown]
  - Hallucination [Recovering/Resolving]
  - Muscular weakness [Not Recovered/Not Resolved]
  - Intentional product misuse [Unknown]
  - Off label use [Unknown]
  - Hypertension [Recovering/Resolving]
  - Constipation [Recovered/Resolved]
  - Pain in extremity [Recovering/Resolving]
  - Erythema [Not Recovered/Not Resolved]

NARRATIVE: CASE EVENT DATE: 201801
